FAERS Safety Report 22167182 (Version 2)
Quarter: 2023Q2

REPORT INFORMATION
  Report Type: Spontaneous
  Country: MY (occurrence: MY)
  Receive Date: 20230403
  Receipt Date: 20230407
  Transmission Date: 20230722
  Serious: Yes (Hospitalization, Other)
  Sender: FDA-Public Use
  Company Number: MY-MYLANLABS-2023M1033590

PATIENT
  Age: 35 Year
  Sex: Male

DRUGS (2)
  1. TENOFOVIR DISOPROXIL FUMARATE [Suspect]
     Active Substance: TENOFOVIR DISOPROXIL FUMARATE
     Indication: Hepatitis B
     Dosage: 300 MILLIGRAM, QD
     Route: 048
     Dates: start: 20181029
  2. AMLODIPINE [Suspect]
     Active Substance: AMLODIPINE BESYLATE
     Indication: Hypertension
     Dosage: 10 MILLIGRAM, QD
     Route: 048

REACTIONS (11)
  - Palpitations [Recovered/Resolved]
  - Muscular weakness [Recovered/Resolved]
  - Fanconi syndrome acquired [Recovering/Resolving]
  - Renal tubular acidosis [Unknown]
  - Hypokalaemia [Unknown]
  - Hypocalcaemia [Unknown]
  - Muscle spasms [Unknown]
  - Metabolic acidosis [Unknown]
  - Glycosuria [Unknown]
  - Hypophosphataemia [Unknown]
  - Blood creatinine increased [Not Recovered/Not Resolved]

NARRATIVE: CASE EVENT DATE: 20220329
